FAERS Safety Report 17043507 (Version 2)
Quarter: 2020Q1

REPORT INFORMATION
  Report Type: Spontaneous
  Country: US (occurrence: US)
  Receive Date: 20191118
  Receipt Date: 20200110
  Transmission Date: 20200409
  Serious: No
  Sender: FDA-Public Use
  Company Number: US-PFIZER INC-2019495931

PATIENT
  Age: 79 Year
  Sex: Male
  Weight: 81.65 kg

DRUGS (2)
  1. ADVIL [Suspect]
     Active Substance: IBUPROFEN
     Indication: BACK DISORDER
     Dosage: UNK, AS NEEDED (4 EVERY 8 HRS)
     Dates: start: 20190615, end: 20191008
  2. ADVIL [Suspect]
     Active Substance: IBUPROFEN
     Indication: BACK PAIN

REACTIONS (3)
  - Expired product administered [Unknown]
  - Product use issue [Unknown]
  - Gastric disorder [Recovered/Resolved]

NARRATIVE: CASE EVENT DATE: 201910
